FAERS Safety Report 8989251 (Version 3)
Quarter: 2013Q1

REPORT INFORMATION
  Report Type: Report from Study
  Country: JP (occurrence: JP)
  Receive Date: 20121228
  Receipt Date: 20130311
  Transmission Date: 20140127
  Serious: Yes (Death)
  Sender: FDA-Public Use
  Company Number: JP-009507513-1212JPN010692

PATIENT
  Age: 46 Year
  Sex: Male
  Weight: 88 kg

DRUGS (8)
  1. PEGINTRON [Suspect]
     Indication: CHRONIC HEPATITIS C
     Dosage: 1.5 MICROGRAM PER KILOGRAM, QW
     Route: 058
     Dates: start: 20120911, end: 20121204
  2. REBETOL [Suspect]
     Indication: CHRONIC HEPATITIS C
     Dosage: 800 MG, QD
     Route: 048
     Dates: start: 20120911, end: 20121204
  3. TELAVIC [Suspect]
     Indication: CHRONIC HEPATITIS C
     Dosage: 2250 MG, QD
     Route: 048
     Dates: start: 20120911, end: 20121015
  4. TELAVIC [Suspect]
     Dosage: 1500 MG , QD
     Route: 048
     Dates: start: 20121016, end: 20121203
  5. LOXONIN [Concomitant]
     Indication: PROPHYLAXIS
     Dosage: 60 MG/DAY PRN
     Route: 048
     Dates: start: 20120911, end: 20121204
  6. MUCOSTA [Concomitant]
     Indication: PROPHYLAXIS
     Dosage: 100MG/DAY, PRN
     Route: 048
     Dates: start: 20120911, end: 20121204
  7. LENDORMIN D [Concomitant]
     Indication: PROPHYLAXIS
     Dosage: 0.25 MG, QD
     Route: 048
     Dates: start: 20120911, end: 20121204
  8. SOLDEM 1 [Concomitant]
     Indication: PROPHYLAXIS
     Dosage: 500 ML, QD, INTRAVENOUS UNSPECIFIED
     Route: 042
     Dates: start: 20120911, end: 20120922

REACTIONS (1)
  - Completed suicide [Fatal]
